FAERS Safety Report 9967108 (Version 1)
Quarter: 2014Q1

REPORT INFORMATION
  Report Type: Report from Study
  Country: US (occurrence: US)
  Receive Date: 20140305
  Receipt Date: 20140305
  Transmission Date: 20141002
  Serious: Yes (Hospitalization)
  Sender: FDA-Public Use
  Company Number: US-ABBVIE-13P-163-1138388-00

PATIENT
  Age: 60 Year
  Sex: Female

DRUGS (14)
  1. HUMIRA [Suspect]
     Indication: PSORIATIC ARTHROPATHY
     Dates: start: 200506
  2. LOSARTAN [Concomitant]
     Indication: PRODUCT USED FOR UNKNOWN INDICATION
  3. ATENTOL [Concomitant]
     Indication: PRODUCT USED FOR UNKNOWN INDICATION
  4. LEVOTHYROXINE [Concomitant]
     Indication: PRODUCT USED FOR UNKNOWN INDICATION
  5. CITRACAL [Concomitant]
     Indication: PRODUCT USED FOR UNKNOWN INDICATION
  6. BABY ASPIRIN [Concomitant]
     Indication: PRODUCT USED FOR UNKNOWN INDICATION
  7. NITROGLYCERIN [Concomitant]
     Indication: PRODUCT USED FOR UNKNOWN INDICATION
  8. PRAVASTATIN [Concomitant]
     Indication: PRODUCT USED FOR UNKNOWN INDICATION
  9. ALLEGRA [Concomitant]
     Indication: PRODUCT USED FOR UNKNOWN INDICATION
  10. RHINOCORT PM [Concomitant]
     Indication: PRODUCT USED FOR UNKNOWN INDICATION
  11. LACTAID [Concomitant]
     Indication: PRODUCT USED FOR UNKNOWN INDICATION
  12. MECLAZINE [Concomitant]
     Indication: PRODUCT USED FOR UNKNOWN INDICATION
  13. MUCINEX [Concomitant]
     Indication: PRODUCT USED FOR UNKNOWN INDICATION
  14. CALCIUM [Concomitant]
     Indication: PRODUCT USED FOR UNKNOWN INDICATION

REACTIONS (3)
  - Bronchitis [Recovering/Resolving]
  - Pneumonia [Recovering/Resolving]
  - Asthma [Recovering/Resolving]
